FAERS Safety Report 6177487-X (Version None)
Quarter: 2009Q2

REPORT INFORMATION
  Report Type: 
  Country: None (occurrence: None)
  Receive Date: 20090504
  Receipt Date: 20090427
  Transmission Date: 20091009
  Serious: Yes (Death, Other)
  Sender: FDA-Public Use
  Company Number: PHHY2009GR15981

PATIENT
  Age: 38 Year
  Sex: Male

DRUGS (5)
  1. DEFERASIROX [Suspect]
     Indication: ZYGOMYCOSIS
     Dosage: 30 MG/KG
  2. CYCLOPHOSPHAMIDE [Suspect]
  3. CLOFARABINE [Concomitant]
  4. AMPHOTERICIN B [Concomitant]
  5. POSACONAZOLE [Concomitant]

REACTIONS (2)
  - ACUTE LYMPHOCYTIC LEUKAEMIA RECURRENT [None]
  - PULMONARY HAEMORRHAGE [None]
